APPROVED DRUG PRODUCT: TRANXENE
Active Ingredient: CLORAZEPATE DIPOTASSIUM
Strength: 15MG **Federal Register determination that product was not discontinued or withdrawn for safety or effectiveness reasons**
Dosage Form/Route: CAPSULE;ORAL
Application: N017105 | Product #003
Applicant: AJENAT PHARMACEUTICALS LLC
Approved: Approved Prior to Jan 1, 1982 | RLD: Yes | RS: No | Type: DISCN